FAERS Safety Report 7393573-0 (Version None)
Quarter: 2011Q1

REPORT INFORMATION
  Report Type: 
  Country: None (occurrence: None)
  Receive Date: 20110331
  Receipt Date: 20110331
  Transmission Date: 20110831
  Serious: No
  Sender: FDA-Public Use
  Company Number: None

PATIENT
  Age: 66 Year
  Sex: Female
  Weight: 93.8946 kg

DRUGS (3)
  1. LEVAQUIN [Suspect]
     Indication: CHOKING
     Dosage: 500MG QTY. 10 1 TABLET A DAY
     Dates: start: 20110310, end: 20110313
  2. LEVAQUIN [Suspect]
     Indication: INCREASED BRONCHIAL SECRETION
     Dosage: 500MG QTY. 10 1 TABLET A DAY
     Dates: start: 20110310, end: 20110313
  3. LEVAQUIN [Suspect]
     Indication: URINARY TRACT INFECTION
     Dosage: 500MG QTY. 10 1 TABLET A DAY
     Dates: start: 20110310, end: 20110313

REACTIONS (2)
  - MUSCLE SPASMS [None]
  - OEDEMA PERIPHERAL [None]
